FAERS Safety Report 7540617-9 (Version None)
Quarter: 2011Q2

REPORT INFORMATION
  Report Type: 
  Country: None (occurrence: None)
  Receive Date: 20110603
  Receipt Date: 20110518
  Transmission Date: 20111010
  Serious: Yes (Hospitalization)
  Sender: FDA-Public Use
  Company Number: 20110518

PATIENT
  Age: 40 Year
  Sex: Male
  Weight: 74.8435 kg

DRUGS (13)
  1. ALINIA [Suspect]
     Indication: GASTROINTESTINAL HYPOMOTILITY
     Dosage: 500MG QOD, 047; 500MG BID, 047
     Dates: start: 20110515, end: 20110517
  2. ALINIA [Suspect]
     Indication: IRRITABLE BOWEL SYNDROME
     Dosage: 500MG QOD, 047; 500MG BID, 047
     Dates: start: 20110515, end: 20110517
  3. ALINIA [Suspect]
     Indication: DIARRHOEA
     Dosage: 500MG QOD, 047; 500MG BID, 047
     Dates: start: 20110515, end: 20110517
  4. ALINIA [Suspect]
     Indication: GASTROINTESTINAL HYPOMOTILITY
     Dosage: 500MG QOD, 047; 500MG BID, 047
     Dates: start: 20110401, end: 20110430
  5. ALINIA [Suspect]
     Indication: IRRITABLE BOWEL SYNDROME
     Dosage: 500MG QOD, 047; 500MG BID, 047
     Dates: start: 20110401, end: 20110430
  6. ALINIA [Suspect]
     Indication: DIARRHOEA
     Dosage: 500MG QOD, 047; 500MG BID, 047
     Dates: start: 20110401, end: 20110430
  7. HYDROCHLOROTHIAZIDE [Concomitant]
  8. ATENOLOL [Concomitant]
  9. DIAZEPAN [Concomitant]
  10. HYDROCODONE [Concomitant]
  11. ASPIRIN [Concomitant]
  12. RAPAFLO [Concomitant]
  13. SYNTHROID [Concomitant]

REACTIONS (3)
  - PARALYSIS [None]
  - DRY SKIN [None]
  - ARTHRALGIA [None]
